FAERS Safety Report 8812153 (Version 2)
Quarter: 2015Q2

REPORT INFORMATION
  Report Type: Report from Study
  Country: US (occurrence: US)
  Receive Date: 20120927
  Receipt Date: 20150623
  Transmission Date: 20150821
  Serious: Yes (Death, Other)
  Sender: FDA-Public Use
  Company Number: US-ROCHE-1129279

PATIENT
  Sex: Female

DRUGS (16)
  1. ABRAXANE [Concomitant]
     Active Substance: PACLITAXEL
     Route: 065
     Dates: start: 20060804
  2. ARANESP [Concomitant]
     Active Substance: DARBEPOETIN ALFA
  3. DECADRON [Concomitant]
     Active Substance: DEXAMETHASONE
  4. AVASTIN [Suspect]
     Active Substance: BEVACIZUMAB
     Indication: BREAST CANCER FEMALE
     Dosage: ON DAY 1 AND DAY 15
     Route: 065
     Dates: start: 20060707
  5. ZOMETA [Concomitant]
     Active Substance: ZOLEDRONIC ACID
     Route: 065
     Dates: start: 20060804
  6. POLYSPORIN (UNITED STATES) [Concomitant]
  7. KYTRIL [Concomitant]
     Active Substance: GRANISETRON HYDROCHLORIDE
     Route: 065
  8. OXACILLIN [Concomitant]
     Active Substance: OXACILLIN SODIUM
  9. ARIMIDEX [Concomitant]
     Active Substance: ANASTROZOLE
  10. ZOMETA [Concomitant]
     Active Substance: ZOLEDRONIC ACID
     Route: 065
     Dates: start: 20060908
  11. TAXOL [Concomitant]
     Active Substance: PACLITAXEL
  12. AVASTIN [Suspect]
     Active Substance: BEVACIZUMAB
     Route: 065
     Dates: start: 20060621
  13. ARIMIDEX [Concomitant]
     Active Substance: ANASTROZOLE
  14. FASLODEX [Concomitant]
     Active Substance: FULVESTRANT
  15. DICLOXACILLIN [Concomitant]
     Active Substance: DICLOXACILLIN
  16. NEULASTA [Concomitant]
     Active Substance: PEGFILGRASTIM
     Route: 065

REACTIONS (15)
  - Constipation [Unknown]
  - Off label use [Unknown]
  - Rash [Recovered/Resolved]
  - Back pain [Unknown]
  - Disease progression [Unknown]
  - Musculoskeletal chest pain [Recovering/Resolving]
  - Musculoskeletal pain [Unknown]
  - Epistaxis [Unknown]
  - Neoplasm [Recovering/Resolving]
  - Pain in extremity [Unknown]
  - Death [Fatal]
  - Staphylococcal infection [Recovered/Resolved]
  - Depression [Unknown]
  - Fatigue [Unknown]
  - Nail disorder [Unknown]
